FAERS Safety Report 7015789-5 (Version None)
Quarter: 2010Q3

REPORT INFORMATION
  Report Type: 
  Country: None (occurrence: None)
  Receive Date: 20100927
  Receipt Date: 20100921
  Transmission Date: 20110219
  Serious: Yes (Other)
  Sender: FDA-Public Use
  Company Number: CN-JNJFOC-20100906754

PATIENT
  Age: 30 Year
  Sex: Female

DRUGS (2)
  1. GYNO-DAKTARIN [Suspect]
     Route: 067
  2. GYNO-DAKTARIN [Suspect]
     Indication: VAGINAL INFECTION
     Route: 067

REACTIONS (6)
  - APHASIA [None]
  - ASTHENIA [None]
  - GAIT DISTURBANCE [None]
  - SOMNOLENCE [None]
  - VULVOVAGINAL BURNING SENSATION [None]
  - VULVOVAGINAL PAIN [None]
